FAERS Safety Report 8908014 (Version 1)
Quarter: 2012Q4

REPORT INFORMATION
  Report Type: 
  Country: GB (occurrence: GB)
  Receive Date: 20121114
  Receipt Date: 20121114
  Transmission Date: 20130627
  Serious: Yes (Other)
  Sender: FDA-Public Use
  Company Number: PHFR2012GB005902

PATIENT
  Sex: Male

DRUGS (1)
  1. ZOMETA [Suspect]
     Dosage: UNK UKN, UNK

REACTIONS (6)
  - Neuropathy peripheral [Unknown]
  - Dyspnoea [Unknown]
  - Poor quality sleep [Unknown]
  - Back pain [Unknown]
  - Dry mouth [Unknown]
  - Fatigue [Unknown]
